FAERS Safety Report 6681005-7 (Version None)
Quarter: 2010Q2

REPORT INFORMATION
  Report Type: 
  Country: None (occurrence: None)
  Receive Date: 20100414
  Receipt Date: 20100330
  Transmission Date: 20101027
  Serious: Yes (Other)
  Sender: FDA-Public Use
  Company Number: CA-GENENTECH-286951

PATIENT
  Sex: Female

DRUGS (6)
  1. RANIBIZUMAB [Suspect]
     Indication: DRUG USE FOR UNKNOWN INDICATION
     Dosage: .23 ML, UNK
     Route: 031
     Dates: start: 20090526
  2. RANIBIZUMAB [Suspect]
     Dosage: 0.23 ML, UNK
     Route: 031
     Dates: start: 20100215
  3. GLUCOSAMINE [Concomitant]
     Indication: DRUG USE FOR UNKNOWN INDICATION
  4. COLLAGEN [Concomitant]
     Indication: DRUG USE FOR UNKNOWN INDICATION
  5. NOXZEMA SKIN CREAM [Concomitant]
     Indication: DRUG USE FOR UNKNOWN INDICATION
  6. UNSPECIFIED CONCOMITANT DRUGS [Concomitant]
     Indication: DRUG USE FOR UNKNOWN INDICATION

REACTIONS (4)
  - ERYTHEMA [None]
  - EYELID OEDEMA [None]
  - PRURITUS [None]
  - SWELLING FACE [None]
